FAERS Safety Report 16150949 (Version 1)
Quarter: 2019Q2

REPORT INFORMATION
  Report Type: Spontaneous
  Country: DE (occurrence: DE)
  Receive Date: 20190403
  Receipt Date: 20190403
  Transmission Date: 20190711
  Serious: Yes (Other)
  Sender: FDA-Public Use
  Company Number: PHHY2019DE074828

PATIENT
  Age: 63 Year
  Sex: Male

DRUGS (1)
  1. AMLODIPIN 1A PHARMA [Suspect]
     Active Substance: AMLODIPINE BESYLATE
     Indication: HYPERTENSION
     Dosage: 5 MG, QD
     Route: 065
     Dates: start: 201702, end: 201811

REACTIONS (6)
  - Feeling abnormal [Not Recovered/Not Resolved]
  - Sensory loss [Not Recovered/Not Resolved]
  - Dysaesthesia [Not Recovered/Not Resolved]
  - Jaw fracture [Unknown]
  - Polyneuropathy idiopathic progressive [Not Recovered/Not Resolved]
  - Paraesthesia [Not Recovered/Not Resolved]

NARRATIVE: CASE EVENT DATE: 2017
